FAERS Safety Report 8803123 (Version 2)
Quarter: 2013Q1

REPORT INFORMATION
  Report Type: Report from Study
  Country: JP (occurrence: JP)
  Receive Date: 20120924
  Receipt Date: 20130205
  Transmission Date: 20140127
  Serious: Yes (Hospitalization)
  Sender: FDA-Public Use
  Company Number: PHHY2012JP082382

PATIENT
  Age: 85 Year
  Sex: Male
  Weight: 60 kg

DRUGS (4)
  1. VALSARTAN, AMLODIPINE [Suspect]
     Indication: HYPERTENSION
     Dosage: 1 DF, DAILY
     Route: 048
     Dates: start: 20110107, end: 20110911
  2. ALOSITOL [Concomitant]
     Indication: HYPERURICAEMIA
     Dosage: 2 DF, UNK
     Route: 048
     Dates: start: 19931009
  3. METHYCOBAL [Concomitant]
     Indication: NEUROPATHY PERIPHERAL
     Dosage: 3 DF, UNK
     Route: 048
     Dates: start: 20111224
  4. BAYASPIRIN [Concomitant]
     Indication: PROPHYLAXIS
     Dosage: 1 DF, UNK
     Route: 048
     Dates: start: 20110224

REACTIONS (2)
  - Cerebral infarction [Recovered/Resolved]
  - Hemiparesis [Recovering/Resolving]
